FAERS Safety Report 25892771 (Version 3)
Quarter: 2025Q4

REPORT INFORMATION
  Report Type: Spontaneous
  Country: US (occurrence: US)
  Receive Date: 20251007
  Receipt Date: 20251031
  Transmission Date: 20260117
  Serious: Yes (Hospitalization, Other)
  Sender: ABBVIE
  Company Number: US-ABBVIE-6484119

PATIENT
  Age: 67 Year
  Sex: Female

DRUGS (1)
  1. VRAYLAR [Suspect]
     Active Substance: CARIPRAZINE
     Indication: Bipolar I disorder
     Dosage: FORM STRENGTH: 1.5 MILLIGRAM
     Route: 048
     Dates: start: 2022

REACTIONS (13)
  - Cerebrovascular accident [Unknown]
  - Stress [Recovering/Resolving]
  - Ear infection [Unknown]
  - Dysphagia [Recovered/Resolved]
  - Vomiting [Recovered/Resolved]
  - Feeling abnormal [Recovered/Resolved]
  - Cough [Recovered/Resolved]
  - Laryngeal oedema [Recovered/Resolved]
  - Nasopharyngitis [Recovered/Resolved]
  - Speech disorder [Recovered/Resolved]
  - Dehydration [Recovering/Resolving]
  - Laryngeal disorder [Unknown]
  - Cough [Unknown]

NARRATIVE: CASE EVENT DATE: 20230901
